FAERS Safety Report 23959516 (Version 1)
Quarter: 2024Q2

REPORT INFORMATION
  Report Type: Spontaneous
  Country: PK (occurrence: None)
  Receive Date: 20240611
  Receipt Date: 20240611
  Transmission Date: 20240715
  Serious: Yes (Hospitalization)
  Sender: FDA-Public Use
  Company Number: PK-Encube-000765

PATIENT
  Age: 33 Year
  Sex: Female

DRUGS (3)
  1. TRETINOIN [Suspect]
     Active Substance: TRETINOIN
     Indication: Acute promyelocytic leukaemia
  2. VORICONAZOLE [Suspect]
     Active Substance: VORICONAZOLE
     Indication: Aspergillus infection
  3. TRETINOIN [Suspect]
     Active Substance: TRETINOIN
     Indication: Acute promyelocytic leukaemia
     Dosage: RE-EXPOSURE

REACTIONS (4)
  - Dermatitis exfoliative [Recovered/Resolved]
  - Onychomadesis [Recovered/Resolved]
  - Drug interaction [Unknown]
  - Off label use [Unknown]
